FAERS Safety Report 6636009-7 (Version None)
Quarter: 2010Q1

REPORT INFORMATION
  Report Type: 
  Country: None (occurrence: None)
  Receive Date: 20100316
  Receipt Date: 20100302
  Transmission Date: 20100710
  Serious: Yes (Hospitalization, Disabling, Other)
  Sender: FDA-Public Use
  Company Number: ES-CELGENEUS-144-21880-09111369

PATIENT
  Age: 56 Year
  Sex: Female

DRUGS (2)
  1. REVLIMID [Suspect]
     Route: 048
     Dates: start: 20090401, end: 20090921
  2. FORTECORTIN [Suspect]
     Route: 030
     Dates: start: 20090401, end: 20090921

REACTIONS (1)
  - PLASMACYTOMA [None]
